FAERS Safety Report 10191176 (Version 1)
Quarter: 2014Q2

REPORT INFORMATION
  Report Type: Spontaneous
  Country: US (occurrence: US)
  Receive Date: 20140523
  Receipt Date: 20140523
  Transmission Date: 20141212
  Serious: No
  Sender: FDA-Public Use
  Company Number: US-BAUSCH-BL-2013-002475

PATIENT
  Age: 50 Year
  Sex: Female

DRUGS (2)
  1. IPRATROPIUM BROMIDE NASAL SOLUTION 0.06% [Suspect]
     Indication: UPPER-AIRWAY COUGH SYNDROME
     Dosage: 1 SPRAY; TWICE A DAY; NASAL
     Route: 045
     Dates: start: 20130417, end: 20130427
  2. FLUTICASONE PROPIONATE [Concomitant]
     Indication: NASAL CONGESTION
     Dosage: 1 SPRAY; AT BEDTIME; NASAL
     Route: 045
     Dates: start: 20130417, end: 20130427

REACTIONS (2)
  - Nasal discomfort [Not Recovered/Not Resolved]
  - Epistaxis [Not Recovered/Not Resolved]
